FAERS Safety Report 5711391-3 (Version None)
Quarter: 2008Q2

REPORT INFORMATION
  Report Type: 
  Country: None (occurrence: None)
  Receive Date: 20080421
  Receipt Date: 20080410
  Transmission Date: 20081010
  Serious: Yes (Hospitalization, Disabling)
  Sender: FDA-Public Use
  Company Number: SI-ROCHE-558429

PATIENT
  Sex: Male
  Weight: 68 kg

DRUGS (4)
  1. ROACCUTANE [Suspect]
     Route: 048
     Dates: start: 20021219, end: 20030618
  2. DOXYCYCLINE [Concomitant]
     Dosage: DRUG NAME REPORTED AS CLINOFUG D 50 (DOXOCIKLINE).
     Route: 048
  3. DALACIN T [Concomitant]
     Route: 061
  4. DIFFERIN [Concomitant]
     Route: 061

REACTIONS (9)
  - ABDOMINAL PAIN [None]
  - BODY TEMPERATURE INCREASED [None]
  - CHOLANGITIS SCLEROSING [None]
  - COLITIS ULCERATIVE [None]
  - FEAR [None]
  - HEADACHE [None]
  - IDIOSYNCRATIC DRUG REACTION [None]
  - PAIN [None]
  - VOMITING [None]
